FAERS Safety Report 19047873 (Version 1)
Quarter: 2021Q1

REPORT INFORMATION
  Report Type: Report from Study
  Country: US (occurrence: US)
  Receive Date: 20210323
  Receipt Date: 20210323
  Transmission Date: 20210420
  Serious: Yes (Other)
  Sender: FDA-Public Use
  Company Number: US-TAKEDA-2021TUS016764

PATIENT
  Age: 47 Year
  Sex: Female

DRUGS (1)
  1. VON WILLEBRAND FACTOR [Suspect]
     Active Substance: VON WILLEBRAND FACTOR HUMAN
     Indication: PRODUCT USED FOR UNKNOWN INDICATION
     Dosage: UNK
     Route: 065

REACTIONS (2)
  - Surgery [Unknown]
  - Haemorrhage [Unknown]
